FAERS Safety Report 20695037 (Version 1)
Quarter: 2022Q2

REPORT INFORMATION
  Report Type: Spontaneous
  Country: US (occurrence: US)
  Receive Date: 20220411
  Receipt Date: 20220411
  Transmission Date: 20220721
  Serious: Yes (Hospitalization, Other)
  Sender: FDA-Public Use
  Company Number: US-GILEAD-2022-0576400

PATIENT
  Age: 56 Year
  Sex: Male

DRUGS (8)
  1. VEKLURY [Suspect]
     Active Substance: REMDESIVIR
     Indication: COVID-19
     Dosage: 200 MG DAY 1
     Route: 042
  2. VEKLURY [Suspect]
     Active Substance: REMDESIVIR
     Dosage: 100 MG DAY 2
     Route: 042
  3. AMPHOTERICIN B [Concomitant]
     Active Substance: AMPHOTERICIN B
  4. OXYGEN [Concomitant]
     Active Substance: OXYGEN
  5. DEXAMETHASONE [Concomitant]
     Active Substance: DEXAMETHASONE
  6. METHYLPREDNISOLONE [Concomitant]
     Active Substance: METHYLPREDNISOLONE
  7. MICAFUNGIN [Concomitant]
     Active Substance: MICAFUNGIN
  8. FLUCYTOSINE [Concomitant]
     Active Substance: FLUCYTOSINE

REACTIONS (1)
  - Renal failure [Not Recovered/Not Resolved]
